FAERS Safety Report 15717477 (Version 1)
Quarter: 2018Q4

REPORT INFORMATION
  Report Type: Spontaneous
  Country: US (occurrence: US)
  Receive Date: 20181129
  Receipt Date: 20181129
  Transmission Date: 20190205
  Serious: No
  Sender: FDA-Public Use
  Company Number: None

PATIENT
  Age: 16 Year
  Sex: Male

DRUGS (1)
  1. OMNITROPE [Suspect]
     Active Substance: SOMATROPIN
     Dosage: ?          OTHER FREQUENCY:OTHER;?
     Route: 058
     Dates: start: 20180212

REACTIONS (1)
  - Pityriasis rosea [None]

NARRATIVE: CASE EVENT DATE: 20181114
